FAERS Safety Report 5858904-9 (Version None)
Quarter: 2008Q3

REPORT INFORMATION
  Report Type: 
  Country: None (occurrence: None)
  Receive Date: 20080825
  Receipt Date: 20080813
  Transmission Date: 20090109
  Serious: Yes (Hospitalization)
  Sender: FDA-Public Use
  Company Number: DSA_32286_2008

PATIENT
  Sex: Male
  Weight: 57.3 kg

DRUGS (3)
  1. ATIVAN [Suspect]
     Indication: NAUSEA
     Dosage: 1 MG DAILY ORAL
     Route: 048
     Dates: start: 20061119
  2. ATIVAN [Suspect]
     Indication: VOMITING
     Dosage: 1 MG DAILY ORAL
     Route: 048
     Dates: start: 20061119
  3. GEMCITABINE [Suspect]
     Indication: PANCREATIC CARCINOMA
     Dosage: 700 MG 1X/WEEK INTRAVENOUS (NOT OTHERWISE SPECIFIED)
     Route: 042
     Dates: start: 20060316

REACTIONS (2)
  - MENTAL STATUS CHANGES [None]
  - RENAL IMPAIRMENT [None]
